FAERS Safety Report 14805917 (Version 1)
Quarter: 2018Q2

REPORT INFORMATION
  Report Type: Spontaneous
  Country: CZ (occurrence: CZ)
  Receive Date: 20180425
  Receipt Date: 20180425
  Transmission Date: 20180711
  Serious: Yes (Hospitalization)
  Sender: FDA-Public Use
  Company Number: CZ-ELI_LILLY_AND_COMPANY-CZ201804010665

PATIENT
  Age: 57 Year
  Sex: Male

DRUGS (1)
  1. CYRAMZA [Suspect]
     Active Substance: RAMUCIRUMAB
     Indication: ADENOCARCINOMA GASTRIC
     Dosage: 1 DF, UNKNOWN
     Route: 065
     Dates: end: 20180315

REACTIONS (2)
  - Infection [Unknown]
  - Immunosuppression [Unknown]

NARRATIVE: CASE EVENT DATE: 20180330
